FAERS Safety Report 8158999-6 (Version None)
Quarter: 2012Q1

REPORT INFORMATION
  Report Type: 
  Country: None (occurrence: None)
  Receive Date: 20120217
  Receipt Date: 20120208
  Transmission Date: 20120608
  Serious: Yes (Other)
  Sender: FDA-Public Use
  Company Number: 2012MA001737

PATIENT
  Age: 70 Year
  Sex: Female
  Weight: 73.4827 kg

DRUGS (7)
  1. XANAX [Concomitant]
  2. NORVASC [Concomitant]
  3. ALTACE [Suspect]
     Dosage: 10 MG;BID;PO
     Route: 048
  4. BENICAR [Concomitant]
  5. BESYLATE [Concomitant]
  6. RAMIPRIL [Suspect]
     Dosage: 5 MG; BID; PO
     Route: 048
  7. AMLODIPINE [Concomitant]

REACTIONS (6)
  - INSOMNIA [None]
  - INITIAL INSOMNIA [None]
  - DRUG INEFFECTIVE [None]
  - PRODUCT SUBSTITUTION ISSUE [None]
  - ANXIETY [None]
  - NERVOUSNESS [None]
